FAERS Safety Report 13055244 (Version 1)
Quarter: 2016Q4

REPORT INFORMATION
  Report Type: Spontaneous
  Country: IN (occurrence: IN)
  Receive Date: 20161222
  Receipt Date: 20161222
  Transmission Date: 20170207
  Serious: Yes (Hospitalization)
  Sender: FDA-Public Use
  Company Number: IN-BION-005821

PATIENT
  Age: 32 Year
  Sex: Female

DRUGS (2)
  1. QUETIAPINE/QUETIAPINE FUMARATE [Concomitant]
     Indication: SCHIZOAFFECTIVE DISORDER
     Route: 048
  2. VALPROIC ACID UNKNOWN PRODUCT [Suspect]
     Active Substance: VALPROIC ACID
     Indication: GENERALISED TONIC-CLONIC SEIZURE

REACTIONS (4)
  - Cerebral atrophy [Recovering/Resolving]
  - Toxicity to various agents [Recovered/Resolved]
  - Cerebellar atrophy [Recovering/Resolving]
  - Fall [Unknown]
